FAERS Safety Report 8848751 (Version 1)
Quarter: 2012Q4

REPORT INFORMATION
  Report Type: Report from Study
  Country: GB (occurrence: GB)
  Receive Date: 20121018
  Receipt Date: 20121018
  Transmission Date: 20130627
  Serious: Yes (Death, Other)
  Sender: FDA-Public Use
  Company Number: GB-ROCHE-1146042

PATIENT
  Sex: Female
  Weight: 68 kg

DRUGS (2)
  1. RITUXIMAB [Suspect]
     Indication: PRODUCT USED FOR UNKNOWN INDICATION
     Route: 065
     Dates: start: 20081106
  2. METHOTREXATE [Concomitant]

REACTIONS (6)
  - Bronchopneumonia [Fatal]
  - Bipolar disorder [Unknown]
  - Type 1 diabetes mellitus [Unknown]
  - Urinary tract infection [Unknown]
  - Renal impairment [Unknown]
  - Death [Fatal]
